FAERS Safety Report 6457472-0 (Version None)
Quarter: 2009Q4

REPORT INFORMATION
  Report Type: 
  Country: None (occurrence: None)
  Receive Date: 20091120
  Receipt Date: 20091111
  Transmission Date: 20100525
  Serious: Yes (Hospitalization)
  Sender: FDA-Public Use
  Company Number: DSA_42009_2009

PATIENT
  Sex: Female

DRUGS (2)
  1. XENAZINE [Suspect]
     Indication: TARDIVE DYSKINESIA
     Dosage: 25 MG QD
     Dates: start: 20080101, end: 20090615
  2. STABLON [Concomitant]

REACTIONS (2)
  - MALAISE [None]
  - PARKINSONISM [None]
